FAERS Safety Report 5289140-5 (Version None)
Quarter: 2007Q1

REPORT INFORMATION
  Report Type: 
  Country: None (occurrence: None)
  Receive Date: 20070116
  Receipt Date: 20051207
  Transmission Date: 20070707
  Serious: No
  Sender: FDA-Public Use
  Company Number: FEI2005-3277

PATIENT
  Age: 43 Year
  Sex: Female

DRUGS (9)
  1. INTRAUTERINE COPPER CONTRACEPTIVE [Suspect]
     Indication: CONTRACEPTION
     Dosage: INTRA-UTERINE
     Route: 015
     Dates: start: 20050908, end: 20051119
  2. ZELNORM [Concomitant]
  3. DORYX [Concomitant]
  4. VALTREX [Concomitant]
  5. THYROID TAB [Concomitant]
  6. METFORMIN HYDROCHLORIDE (METFORMIN HYROCHLORIDE) [Concomitant]
  7. XANAX [Concomitant]
  8. EFFEXOR [Concomitant]
  9. MULTIVITAMIN [Concomitant]

REACTIONS (3)
  - ABDOMINAL PAIN [None]
  - IUCD COMPLICATION [None]
  - VAGINAL HAEMORRHAGE [None]
